FAERS Safety Report 8622908-3 (Version None)
Quarter: 2012Q3

REPORT INFORMATION
  Report Type: 
  Country: None (occurrence: None)
  Receive Date: 20120827
  Receipt Date: 20120820
  Transmission Date: 20120928
  Serious: Yes (Other)
  Sender: FDA-Public Use
  Company Number: PHEH2012US016388

PATIENT
  Sex: Female

DRUGS (9)
  1. CARVEDILOL [Concomitant]
  2. LEVOTHYROXINE SODIUM [Concomitant]
  3. METFORMIN HCL [Concomitant]
  4. INSULIN [Suspect]
  5. DIGOXIN [Concomitant]
  6. PAROXETINE HCL [Concomitant]
  7. DIOVAN [Suspect]
  8. SLEEP AID [Concomitant]
  9. CHOLESTEROL MEDICINE [Concomitant]

REACTIONS (5)
  - BLOOD GLUCOSE INCREASED [None]
  - WEIGHT DECREASED [None]
  - SLUGGISHNESS [None]
  - DYSPNOEA [None]
  - SWELLING FACE [None]
